FAERS Safety Report 5255833-9 (Version None)
Quarter: 2007Q1

REPORT INFORMATION
  Report Type: 
  Country: None (occurrence: None)
  Receive Date: 20070301
  Receipt Date: 20070219
  Transmission Date: 20070707
  Serious: Yes (Disabling)
  Sender: FDA-Public Use
  Company Number: 2007-00870

PATIENT
  Age: 54 Year
  Sex: Female

DRUGS (1)
  1. TRELSTAR [Suspect]
     Indication: FIBROMA
     Dosage: 11.25 MG, 1 IN 3 MONTHS, INTRAMUSCULAR
     Route: 030
     Dates: start: 20061109, end: 20061109

REACTIONS (5)
  - DEAFNESS UNILATERAL [None]
  - INNER EAR DISORDER [None]
  - ISCHAEMIA [None]
  - VERTIGO [None]
  - VESTIBULAR DISORDER [None]
